FAERS Safety Report 19676350 (Version 2)
Quarter: 2021Q3

REPORT INFORMATION
  Report Type: Spontaneous
  Country: US (occurrence: US)
  Receive Date: 20210809
  Receipt Date: 20210828
  Transmission Date: 20211014
  Serious: Yes (Hospitalization, Other)
  Sender: FDA-Public Use
  Company Number: US-B.I. PHARMACEUTICALS,INC./RIDGEFIELD-2021-BI-119984

PATIENT
  Age: 74 Year
  Sex: Male
  Weight: 84 kg

DRUGS (3)
  1. DOXYCYCLINE. [Concomitant]
     Active Substance: DOXYCYCLINE
     Indication: CELLULITIS
     Dosage: 100 MG ONCE DAILY FOR 30 DAYS
     Dates: start: 20210717, end: 20210731
  2. CHANTIX [Concomitant]
     Active Substance: VARENICLINE TARTRATE
     Indication: PRODUCT USED FOR UNKNOWN INDICATION
     Dosage: 0.5 MG TABLET, 1 TABLET BY MOUTH TWICE DAILY
     Route: 048
     Dates: start: 2020, end: 202012
  3. MOBIC [Suspect]
     Active Substance: MELOXICAM
     Indication: ARTHRITIS
     Dosage: 15 MG DAILY

REACTIONS (10)
  - Pyrexia [Recovered/Resolved]
  - Pain in extremity [Recovering/Resolving]
  - Syncope [Unknown]
  - Peripheral swelling [Recovering/Resolving]
  - Lethargy [Unknown]
  - Loss of consciousness [Recovered/Resolved]
  - Back injury [Unknown]
  - Bacteraemia [Unknown]
  - Cellulitis [Not Recovered/Not Resolved]
  - Overwork [Recovered/Resolved]

NARRATIVE: CASE EVENT DATE: 2016
